FAERS Safety Report 24345431 (Version 3)
Quarter: 2025Q1

REPORT INFORMATION
  Report Type: Spontaneous
  Country: US (occurrence: US)
  Receive Date: 20240920
  Receipt Date: 20250128
  Transmission Date: 20250408
  Serious: No
  Sender: Kenvue
  Company Number: US-JNJFOC-20240940170

PATIENT
  Age: 66 Year
  Sex: Male

DRUGS (1)
  1. MENS ROGAINE EXTRA STRENGTH [Suspect]
     Active Substance: MINOXIDIL
     Indication: Product used for unknown indication
     Route: 061

REACTIONS (2)
  - Drug ineffective [Unknown]
  - Rash vesicular [Recovered/Resolved]
